FAERS Safety Report 17301960 (Version 1)
Quarter: 2020Q1

REPORT INFORMATION
  Report Type: Spontaneous
  Country: US (occurrence: US)
  Receive Date: 20200122
  Receipt Date: 20200122
  Transmission Date: 20200409
  Serious: No
  Sender: FDA-Public Use
  Company Number: US-ABBVIE-19K-163-3203131-00

PATIENT
  Sex: Female

DRUGS (2)
  1. ORILISSA [Suspect]
     Active Substance: ELAGOLIX SODIUM
     Route: 048
     Dates: start: 2019
  2. ORILISSA [Suspect]
     Active Substance: ELAGOLIX SODIUM
     Indication: ENDOMETRIOSIS
     Route: 048
     Dates: start: 201901, end: 2019

REACTIONS (17)
  - Dry skin [Unknown]
  - Fatigue [Unknown]
  - Decreased interest [Unknown]
  - Hot flush [Unknown]
  - Depression [Unknown]
  - Disturbance in attention [Unknown]
  - Loss of libido [Unknown]
  - Headache [Unknown]
  - Muscle atrophy [Unknown]
  - Ear discomfort [Unknown]
  - Eye disorder [Unknown]
  - Asthenia [Unknown]
  - Bone pain [Unknown]
  - Hair texture abnormal [Unknown]
  - Insomnia [Unknown]
  - Abdominal distension [Unknown]
  - Arthralgia [Unknown]
